FAERS Safety Report 11183753 (Version 1)
Quarter: 2015Q2

REPORT INFORMATION
  Report Type: Spontaneous
  Country: IN (occurrence: IN)
  Receive Date: 20150612
  Receipt Date: 20150612
  Transmission Date: 20150821
  Serious: Yes (Hospitalization)
  Sender: FDA-Public Use
  Company Number: IN-ACCORD-031377

PATIENT
  Age: 66 Year
  Sex: Male

DRUGS (1)
  1. METHOTREXATE [Suspect]
     Active Substance: METHOTREXATE
     Indication: PSORIASIS
     Dosage: PRESCRIBED WEEKLY FOR FOUR WEEKS BUT RECEIVED FOUR CONSECUTIVE DAYS
     Route: 048

REACTIONS (3)
  - Medication error [Unknown]
  - Skin ulcer [Recovering/Resolving]
  - Toxicity to various agents [Unknown]
